FAERS Safety Report 7301292-1 (Version None)
Quarter: 2011Q1

REPORT INFORMATION
  Report Type: 
  Country: None (occurrence: None)
  Receive Date: 20110218
  Receipt Date: 20110209
  Transmission Date: 20110831
  Serious: Yes (Death)
  Sender: FDA-Public Use
  Company Number: FR-EISAI INC-E7273-00211-SPO-FR

PATIENT
  Sex: Female

DRUGS (1)
  1. TARGRETIN [Suspect]
     Dosage: UNKNOWN
     Route: 048

REACTIONS (3)
  - HYPOTHYROIDISM [None]
  - HYPERTRIGLYCERIDAEMIA [None]
  - NEOPLASM MALIGNANT [None]
